FAERS Safety Report 5126398-7 (Version None)
Quarter: 2006Q3

REPORT INFORMATION
  Report Type: 
  Country: None (occurrence: None)
  Receive Date: 20060830
  Receipt Date: 20060209
  Transmission Date: 20061208
  Serious: Yes (Life-Threatening)
  Sender: FDA-Public Use
  Company Number: 200512988BWH

PATIENT

DRUGS (2)
  1. APROTININ [Suspect]
     Indication: MITRAL VALVE REPAIR
     Dosage: SEE IMAGE
     Route: 042
     Dates: start: 20050101
  2. APROTININ [Suspect]
     Indication: MITRAL VALVE REPAIR
     Dosage: SEE IMAGE
     Route: 042
     Dates: start: 20050101

REACTIONS (3)
  - ANAPHYLACTIC REACTION [None]
  - HYPOTENSION [None]
  - PULMONARY FUNCTION TEST DECREASED [None]
